FAERS Safety Report 6105300-5 (Version None)
Quarter: 2009Q1

REPORT INFORMATION
  Report Type: 
  Country: None (occurrence: None)
  Receive Date: 20090306
  Receipt Date: 20090225
  Transmission Date: 20090719
  Serious: Yes (Other)
  Sender: FDA-Public Use
  Company Number: US-ABBOTT-09P-163-0559073-00

PATIENT
  Sex: Female
  Weight: 113.5 kg

DRUGS (12)
  1. HUMIRA [Suspect]
     Indication: RHEUMATOID ARTHRITIS
     Dates: start: 20040101, end: 20090209
  2. METHOTREXATE [Concomitant]
     Indication: RHEUMATOID ARTHRITIS
  3. ISOSORBIDE [Concomitant]
     Indication: CARDIAC DISORDER
  4. ISOSORBIDE [Concomitant]
     Indication: HYPERTENSION
  5. ADALATT [Concomitant]
     Indication: CARDIAC DISORDER
  6. METOPROLOL TARTRATE [Concomitant]
     Indication: CARDIAC DISORDER
  7. METOPROLOL TARTRATE [Concomitant]
     Indication: HYPERTENSION
  8. ATACAND [Concomitant]
     Indication: HYPERTENSION
  9. LEXAPRO [Concomitant]
     Indication: DEPRESSION
  10. TRAZODONE HCL [Concomitant]
     Indication: INSOMNIA
  11. PROTONIX [Concomitant]
     Indication: GASTROOESOPHAGEAL REFLUX DISEASE
  12. VITAMIN B6 [Concomitant]
     Indication: DRUG USE FOR UNKNOWN INDICATION

REACTIONS (5)
  - BLINDNESS [None]
  - BLINDNESS TRANSIENT [None]
  - CEREBROVASCULAR ACCIDENT [None]
  - DEMYELINATION [None]
  - MIGRAINE WITH AURA [None]
